FAERS Safety Report 17477812 (Version 1)
Quarter: 2020Q1

REPORT INFORMATION
  Report Type: Spontaneous
  Country: PT (occurrence: PT)
  Receive Date: 20200229
  Receipt Date: 20200229
  Transmission Date: 20200409
  Serious: Yes (Other)
  Sender: FDA-Public Use
  Company Number: PT-ACCORD-174229

PATIENT
  Age: 42 Year
  Sex: Male
  Weight: 60 kg

DRUGS (6)
  1. FOLINIC ACID [Concomitant]
     Active Substance: LEUCOVORIN
  2. FLUOROURACIL. [Concomitant]
     Active Substance: FLUOROURACIL
  3. ONDANSETRON [Concomitant]
     Active Substance: ONDANSETRON
  4. OXALIPLATIN ACCORD [Suspect]
     Active Substance: OXALIPLATIN
     Indication: COLON CANCER
     Dosage: 150MG
     Route: 042
     Dates: start: 20191204
  5. FOSAPREPITANT [Concomitant]
     Active Substance: FOSAPREPITANT
  6. DEXAMETHASONE. [Concomitant]
     Active Substance: DEXAMETHASONE

REACTIONS (5)
  - Dyspnoea [Recovered/Resolved]
  - Cough [Recovered/Resolved]
  - Erythema [Recovered/Resolved]
  - Bronchospasm [Recovered/Resolved]
  - Throat irritation [Recovered/Resolved]

NARRATIVE: CASE EVENT DATE: 20200211
